FAERS Safety Report 11131532 (Version 1)
Quarter: 2015Q2

REPORT INFORMATION
  Report Type: Spontaneous
  Country: US (occurrence: US)
  Receive Date: 20150522
  Receipt Date: 20150522
  Transmission Date: 20150821
  Serious: Yes (Other)
  Sender: FDA-Public Use
  Company Number: US-PFIZER INC-2015168964

PATIENT

DRUGS (1)
  1. SYNERCID [Suspect]
     Active Substance: DALFOPRISTIN\QUINUPRISTIN
     Dosage: UNK

REACTIONS (1)
  - Device related infection [Unknown]
